FAERS Safety Report 12988313 (Version 3)
Quarter: 2017Q1

REPORT INFORMATION
  Report Type: Spontaneous
  Country: US (occurrence: US)
  Receive Date: 20161130
  Receipt Date: 20170221
  Transmission Date: 20170428
  Serious: Yes (Hospitalization)
  Sender: FDA-Public Use
  Company Number: US-PFIZER INC-2016131216

PATIENT
  Age: 82 Year
  Sex: Female
  Weight: 108.9 kg

DRUGS (11)
  1. XARELTO [Concomitant]
     Active Substance: RIVAROXABAN
     Dosage: 20 MG, DAILY
     Route: 048
  2. IBRANCE [Suspect]
     Active Substance: PALBOCICLIB
     Indication: BREAST CANCER FEMALE
     Dosage: 125 MG, CYCLIC (TAKE ONE (1) CAPSULE BY MOUTH ONCE DAILY WITH FOOD 21 DAYS ON 7 DAYS OFF )
     Route: 048
  3. ASPIRIN 81 [Concomitant]
     Active Substance: ASPIRIN
     Dosage: 81 MG, DAILY
     Route: 048
  4. IBRANCE [Suspect]
     Active Substance: PALBOCICLIB
     Dosage: 125 MG, CYCLIC (DAYS 1-21 )
     Route: 048
     Dates: start: 201607, end: 201609
  5. FEMARA [Concomitant]
     Active Substance: LETROZOLE
     Dosage: 25 MG, DAILY
     Route: 048
     Dates: start: 201608
  6. ATORVASTATIN [Concomitant]
     Active Substance: ATORVASTATIN
     Dosage: UNK
  7. IBRANCE [Suspect]
     Active Substance: PALBOCICLIB
     Dosage: 100 MG, CYCLIC(TAKE ONE (1) CAPSULE BY MOUTH ONCE DAILY WITH FOOD 21 DAYS ON 7 DAYS OFF )
     Route: 048
  8. NABUMETONE. [Concomitant]
     Active Substance: NABUMETONE
     Dosage: 500 MG, DAILY
     Route: 048
  9. ATENOLOL. [Concomitant]
     Active Substance: ATENOLOL
     Dosage: 25 MG, DAILY
     Route: 048
  10. CARDIZEM [Concomitant]
     Active Substance: DILTIAZEM HYDROCHLORIDE
     Dosage: 30 MG, 4X/DAY (QID)
     Route: 048
  11. FASLODEX [Concomitant]
     Active Substance: FULVESTRANT
     Indication: BREAST CANCER
     Dosage: 500 MG, (Q MONTHS)
     Route: 030
     Dates: start: 201308, end: 201608

REACTIONS (9)
  - Amnesia [Unknown]
  - Decreased appetite [Recovering/Resolving]
  - Abdominal pain [Recovering/Resolving]
  - Mental status changes [Recovering/Resolving]
  - Gait disturbance [Unknown]
  - Neoplasm progression [Unknown]
  - Mastitis [Recovering/Resolving]
  - Renal failure [Recovering/Resolving]
  - Confusional state [Recovering/Resolving]

NARRATIVE: CASE EVENT DATE: 201609
